FAERS Safety Report 17947146 (Version 12)
Quarter: 2025Q2

REPORT INFORMATION
  Report Type: Report from Study
  Country: US (occurrence: US)
  Receive Date: 20200625
  Receipt Date: 20250618
  Transmission Date: 20250716
  Serious: Yes (Hospitalization, Other)
  Sender: TAKEDA
  Company Number: US-SHIRE-US202020765

PATIENT
  Sex: Female
  Weight: 93 kg

DRUGS (68)
  1. HUMAN IMMUNOGLOBULIN G [Suspect]
     Active Substance: HUMAN IMMUNOGLOBULIN G
     Indication: Multiple sclerosis
     Dosage: 30 GRAM, Q4WEEKS
  2. HUMAN IMMUNOGLOBULIN G [Suspect]
     Active Substance: HUMAN IMMUNOGLOBULIN G
     Indication: Immunodeficiency common variable
     Dosage: UNK UNK, Q4WEEKS
  3. HUMAN IMMUNOGLOBULIN G [Suspect]
     Active Substance: HUMAN IMMUNOGLOBULIN G
     Dosage: 30 GRAM, Q4WEEKS
  4. HUMAN IMMUNOGLOBULIN G [Suspect]
     Active Substance: HUMAN IMMUNOGLOBULIN G
     Dosage: 10 GRAM, Q4WEEKS
  5. HUMAN IMMUNOGLOBULIN G [Suspect]
     Active Substance: HUMAN IMMUNOGLOBULIN G
     Dosage: UNK UNK, MONTHLY
  6. OXALIPLATIN [Suspect]
     Active Substance: OXALIPLATIN
     Indication: Product used for unknown indication
  7. DIPHENHYDRAMINE HYDROCHLORIDE [Concomitant]
     Active Substance: DIPHENHYDRAMINE HYDROCHLORIDE
  8. METHYLPREDNISOLONE [Concomitant]
     Active Substance: METHYLPREDNISOLONE
  9. EPINEPHRINE [Concomitant]
     Active Substance: EPINEPHRINE
  10. SODIUM CHLORIDE [Concomitant]
     Active Substance: SODIUM CHLORIDE
  11. OXYCODONE AND ACETAMINOPHEN [Concomitant]
     Active Substance: ACETAMINOPHEN\OXYCODONE HYDROCHLORIDE
  12. PREDNISONE [Concomitant]
     Active Substance: PREDNISONE
  13. ALLEGRA-D [Concomitant]
     Active Substance: FEXOFENADINE HYDROCHLORIDE\PSEUDOEPHEDRINE HYDROCHLORIDE
  14. JUBLIA [Concomitant]
     Active Substance: EFINACONAZOLE
  15. AMOXICILLIN [Concomitant]
     Active Substance: AMOXICILLIN
  16. GABAPENTIN [Concomitant]
     Active Substance: GABAPENTIN
     Dosage: 600 MICROGRAM, QD
  17. ACYCLOVIR [Concomitant]
     Active Substance: ACYCLOVIR
     Dosage: 200 MILLIGRAM, TID
  18. SODIUM CHLORIDE [Concomitant]
     Active Substance: SODIUM CHLORIDE
  19. VYVANSE [Concomitant]
     Active Substance: LISDEXAMFETAMINE DIMESYLATE
  20. LAMICTAL XR [Concomitant]
     Active Substance: LAMOTRIGINE
  21. ZOFRAN [Concomitant]
     Active Substance: ONDANSETRON HYDROCHLORIDE
  22. ADDERALL [Concomitant]
     Active Substance: AMPHETAMINE ASPARTATE\AMPHETAMINE SULFATE\DEXTROAMPHETAMINE SACCHARATE\DEXTROAMPHETAMINE SULFATE
     Dosage: 20 MILLIGRAM, TID
  23. LEVOTHYROXINE SODIUM [Concomitant]
     Active Substance: LEVOTHYROXINE SODIUM
  24. BACLOFEN [Concomitant]
     Active Substance: BACLOFEN
     Dosage: 20 MICROGRAM, TID
  25. CYMBALTA [Concomitant]
     Active Substance: DULOXETINE HYDROCHLORIDE
  26. VALIUM [Concomitant]
     Active Substance: DIAZEPAM
  27. ACETAMINOPHEN [Concomitant]
     Active Substance: ACETAMINOPHEN
  28. ALLEGRA [Concomitant]
     Active Substance: FEXOFENADINE HYDROCHLORIDE
  29. LAMICTAL [Concomitant]
     Active Substance: LAMOTRIGINE
  30. DULOXETINE HYDROCHLORIDE [Concomitant]
     Active Substance: DULOXETINE HYDROCHLORIDE
  31. HEPARIN [Concomitant]
     Active Substance: HEPARIN SODIUM
  32. DIPHENHYDRAMINE [Concomitant]
     Active Substance: DIPHENHYDRAMINE
  33. ADIPEX-P [Concomitant]
     Active Substance: PHENTERMINE HYDROCHLORIDE
     Dosage: 37.5 MILLIGRAM, QD
  34. BENADRYL ALLERGY [Concomitant]
     Active Substance: DIPHENHYDRAMINE HYDROCHLORIDE
  35. CYANOCOBALAMIN [Concomitant]
     Active Substance: CYANOCOBALAMIN
     Dosage: UNK UNK, Q2WEEKS
  36. DICLOFENAC [Concomitant]
     Active Substance: DICLOFENAC
  37. DULOXETINE [Concomitant]
     Active Substance: DULOXETINE
     Dosage: 60 MICROGRAM, QD
  38. FLONASE [Concomitant]
     Active Substance: FLUTICASONE PROPIONATE
     Dosage: 50 MICROGRAM, QD
  39. FLUOROURACIL [Concomitant]
     Active Substance: FLUOROURACIL
     Dosage: UNK UNK, QD
  40. LEMTRADA [Concomitant]
     Active Substance: ALEMTUZUMAB
  41. LEUCOVORIN CALCIUM [Concomitant]
     Active Substance: LEUCOVORIN CALCIUM
     Dosage: 5 MILLIGRAM, QD
  42. LEUCOVORIN CALCIUM [Concomitant]
     Active Substance: LEUCOVORIN CALCIUM
     Dosage: 175 MICROGRAM, QD
  43. LIDOCAINE [Concomitant]
     Active Substance: LIDOCAINE
  44. NUVIGIL [Concomitant]
     Active Substance: ARMODAFINIL
  45. PERCOCET [Concomitant]
     Active Substance: ACETAMINOPHEN\OXYCODONE HYDROCHLORIDE
  46. RABEPRAZOLE [Concomitant]
     Active Substance: RABEPRAZOLE
     Indication: Hyperchlorhydria
     Dosage: 20 MILLIGRAM, QD
  47. TIZANIDINE [Concomitant]
     Active Substance: TIZANIDINE
  48. VIMPAT [Concomitant]
     Active Substance: LACOSAMIDE
     Dosage: 200 MILLIGRAM, TID
  49. VITAMIN D2 [Concomitant]
     Active Substance: ERGOCALCIFEROL
     Dosage: 1250 MICROGRAM, QD
  50. ZANAFLEX [Concomitant]
     Active Substance: TIZANIDINE HYDROCHLORIDE
  51. ZOLOFT [Concomitant]
     Active Substance: SERTRALINE HYDROCHLORIDE
     Dosage: 100 MICROGRAM, QD
  52. ZYRTEC [Concomitant]
     Active Substance: CETIRIZINE HYDROCHLORIDE
  53. ONDANSETRON [Concomitant]
     Active Substance: ONDANSETRON
  54. COMPAZINE [Concomitant]
     Active Substance: PROCHLORPERAZINE MALEATE
  55. ACIPHEX [Concomitant]
     Active Substance: RABEPRAZOLE SODIUM
  56. CLARITIN [Concomitant]
     Active Substance: LORATADINE
  57. VITAMIN D3 [Concomitant]
     Active Substance: CHOLECALCIFEROL
  58. OLANZAPINE [Concomitant]
     Active Substance: OLANZAPINE
  59. LIDOCAINE\PRILOCAINE [Concomitant]
     Active Substance: LIDOCAINE\PRILOCAINE
  60. PROVENTIL HFA [Concomitant]
     Active Substance: ALBUTEROL SULFATE
  61. BREZTRI [Concomitant]
     Active Substance: BUDESONIDE\FORMOTEROL\GLYCOPYRROLATE
  62. LOMOTIL [Concomitant]
     Active Substance: ATROPINE SULFATE\DIPHENOXYLATE HYDROCHLORIDE
  63. PHENTERMINE [Concomitant]
     Active Substance: PHENTERMINE
  64. SINGULAIR [Concomitant]
     Active Substance: MONTELUKAST SODIUM
  65. IPRATROPIUM BROMIDE [Concomitant]
     Active Substance: IPRATROPIUM BROMIDE
  66. BENADRYL [Concomitant]
     Active Substance: DIPHENHYDRAMINE HYDROCHLORIDE
  67. LEVOTHYROXINE [Concomitant]
     Active Substance: LEVOTHYROXINE
  68. OXYCODONE [Concomitant]
     Active Substance: OXYCODONE

REACTIONS (35)
  - Abdominal mass [Recovered/Resolved]
  - Colon cancer [Recovered/Resolved]
  - Squamous cell carcinoma [Unknown]
  - Adenocarcinoma [Recovered/Resolved]
  - Leukopenia [Unknown]
  - Neuropathy peripheral [Unknown]
  - COVID-19 [Recovered/Resolved]
  - Infusion related reaction [Unknown]
  - Skin infection [Unknown]
  - Nasopharyngitis [Unknown]
  - Gastroenteritis viral [Unknown]
  - Pharyngeal disorder [Not Recovered/Not Resolved]
  - Bronchitis [Recovered/Resolved]
  - Product use in unapproved indication [Unknown]
  - Allergic sinusitis [Unknown]
  - Iron deficiency [Unknown]
  - Vitamin B12 deficiency [Unknown]
  - Muscle tightness [Unknown]
  - Dyskinesia [Unknown]
  - Urine output decreased [Unknown]
  - Multiple allergies [Unknown]
  - Sinus disorder [Unknown]
  - Fall [Unknown]
  - Head injury [Unknown]
  - Skin abrasion [Unknown]
  - Sinusitis [Unknown]
  - Pain [Unknown]
  - Anaemia [Unknown]
  - Cough [Unknown]
  - Fatigue [Not Recovered/Not Resolved]
  - Seasonal allergy [Recovering/Resolving]
  - Somnolence [Not Recovered/Not Resolved]
  - Muscle spasms [Not Recovered/Not Resolved]
  - Pain in extremity [Not Recovered/Not Resolved]
  - Headache [Not Recovered/Not Resolved]

NARRATIVE: CASE EVENT DATE: 20100101
